FAERS Safety Report 5714808-3 (Version None)
Quarter: 2008Q2

REPORT INFORMATION
  Report Type: 
  Country: None (occurrence: None)
  Receive Date: 20080423
  Receipt Date: 20080422
  Transmission Date: 20081010
  Serious: Yes (Hospitalization)
  Sender: FDA-Public Use
  Company Number: HR-BRISTOL-MYERS SQUIBB COMPANY-14042352

PATIENT
  Age: 61 Year
  Sex: Female

DRUGS (7)
  1. CISPLATIN [Suspect]
     Indication: GASTRIC CANCER
     Dosage: CYCLE 1-5: 23JAN07 - NI
     Route: 041
     Dates: start: 20070612, end: 20070612
  2. TS-1 [Suspect]
     Indication: GASTRIC CANCER
     Dosage: CYCLE 1-5: 23JAN07 - NI
     Route: 048
     Dates: start: 20070612, end: 20070702
  3. LOSARTAN POTASSIUM [Concomitant]
     Indication: HYPERTENSION
     Route: 048
     Dates: start: 20070501
  4. BISOPROLOL FUMARATE [Concomitant]
     Indication: HYPERTENSION
     Route: 048
     Dates: start: 20061101
  5. PEPTORAN [Concomitant]
     Indication: ULCER
     Dosage: 300 MG = (150 MG, 2IN 1 DAY).
     Route: 048
     Dates: start: 20070115
  6. FERRUM [Concomitant]
     Indication: MINERAL SUPPLEMENTATION
     Dosage: FERRUM LEK
     Route: 048
     Dates: start: 20070124
  7. HELEX [Concomitant]
     Indication: SEDATION
     Route: 048
     Dates: start: 20050101

REACTIONS (1)
  - ANAEMIA MEGALOBLASTIC [None]
